FAERS Safety Report 25194599 (Version 1)
Quarter: 2025Q2

REPORT INFORMATION
  Report Type: Spontaneous
  Country: DE (occurrence: DE)
  Receive Date: 20250414
  Receipt Date: 20250414
  Transmission Date: 20250717
  Serious: Yes (Other)
  Sender: ELI LILLY AND CO
  Company Number: DE-ELI_LILLY_AND_COMPANY-DE202504003239

PATIENT
  Sex: Female

DRUGS (2)
  1. MOUNJARO [Suspect]
     Active Substance: TIRZEPATIDE
     Indication: Product used for unknown indication
     Route: 065
  2. OXITRIPTAN [Concomitant]
     Active Substance: OXITRIPTAN
     Indication: Migraine

REACTIONS (1)
  - Inguinal hernia [Unknown]
